FAERS Safety Report 13280428 (Version 1)
Quarter: 2017Q1

REPORT INFORMATION
  Report Type: Spontaneous
  Country: US (occurrence: US)
  Receive Date: 20170228
  Receipt Date: 20170228
  Transmission Date: 20170428
  Serious: Yes (Hospitalization)
  Sender: FDA-Public Use
  Company Number: None

PATIENT
  Age: 71 Year
  Sex: Female

DRUGS (1)
  1. SOTALOL. [Suspect]
     Active Substance: SOTALOL
     Indication: ATRIAL FIBRILLATION
     Route: 048
     Dates: start: 20160707, end: 20170131

REACTIONS (8)
  - Gait disturbance [None]
  - Therapy cessation [None]
  - Pain [None]
  - Visual acuity reduced [None]
  - Visual impairment [None]
  - Dyspnoea [None]
  - Hyperhidrosis [None]
  - Chest pain [None]

NARRATIVE: CASE EVENT DATE: 20170131
